FAERS Safety Report 15043330 (Version 1)
Quarter: 2018Q2

REPORT INFORMATION
  Report Type: Spontaneous
  Country: US (occurrence: US)
  Receive Date: 20180531
  Receipt Date: 20180531
  Transmission Date: 20180711
  Serious: Yes (Hospitalization)
  Sender: FDA-Public Use
  Company Number: None

PATIENT
  Age: 9 Year
  Sex: Male

DRUGS (3)
  1. RISPERDAL [Suspect]
     Active Substance: RISPERIDONE
     Indication: BIPOLAR DISORDER
     Route: 048
  2. RISPERDAL [Suspect]
     Active Substance: RISPERIDONE
     Indication: SCHIZOPHRENIA
     Route: 048
  3. RISPERDAL [Suspect]
     Active Substance: RISPERIDONE
     Indication: ATTENTION DEFICIT/HYPERACTIVITY DISORDER
     Route: 048

REACTIONS (10)
  - Dystonia [None]
  - Crying [None]
  - Swelling face [None]
  - Wrong drug administered [None]
  - Dysphagia [None]
  - Drug dispensing error [None]
  - Heart rate increased [None]
  - Swollen tongue [None]
  - Lip swelling [None]
  - Tremor [None]

NARRATIVE: CASE EVENT DATE: 20180516
